FAERS Safety Report 6656599-8 (Version None)
Quarter: 2010Q1

REPORT INFORMATION
  Report Type: 
  Country: None (occurrence: None)
  Receive Date: 20100329
  Receipt Date: 20100326
  Transmission Date: 20100710
  Serious: Yes (Death)
  Sender: FDA-Public Use
  Company Number: US-EISAI INC.-E2020-06309-SPO-US

PATIENT
  Sex: Male

DRUGS (1)
  1. ARICEPT [Suspect]
     Route: 048
     Dates: end: 20091022

REACTIONS (1)
  - LUNG NEOPLASM MALIGNANT [None]
